FAERS Safety Report 20648365 (Version 1)
Quarter: 2022Q1

REPORT INFORMATION
  Report Type: Spontaneous
  Country: US (occurrence: US)
  Receive Date: 20220329
  Receipt Date: 20220329
  Transmission Date: 20220423
  Serious: Yes (Other)
  Sender: FDA-Public Use
  Company Number: US-ABBVIE-22K-163-4327672-00

PATIENT
  Age: 64 Year
  Sex: Male

DRUGS (2)
  1. HUMIRA [Suspect]
     Active Substance: ADALIMUMAB
     Indication: Colitis ulcerative
     Route: 058
     Dates: start: 2021, end: 202203
  2. HUMIRA [Suspect]
     Active Substance: ADALIMUMAB
     Route: 058
     Dates: start: 202203

REACTIONS (5)
  - Joint swelling [Recovering/Resolving]
  - Joint range of motion decreased [Recovering/Resolving]
  - Drug level decreased [Unknown]
  - Osteoarthritis [Recovering/Resolving]
  - Chondropathy [Recovering/Resolving]

NARRATIVE: CASE EVENT DATE: 20220201
